FAERS Safety Report 8841843 (Version 2)
Quarter: 2012Q4

REPORT INFORMATION
  Report Type: 
  Country: ES (occurrence: ES)
  Receive Date: 20121016
  Receipt Date: 20121019
  Transmission Date: 20130627
  Serious: Yes (Hospitalization)
  Sender: FDA-Public Use
  Company Number: ES-SANOFI-AVENTIS-2012SA074445

PATIENT
  Age: 72 Year
  Sex: Male

DRUGS (28)
  1. PLAVIX [Suspect]
     Indication: DRUG USE FOR UNKNOWN INDICATION
     Route: 065
  2. UNSPECIFIED INGREDIENT [Suspect]
     Indication: TYPE 2 DIABETES MELLITUS
     Route: 065
     Dates: start: 20100923, end: 20120528
  3. UNSPECIFIED INGREDIENT [Suspect]
     Indication: TYPE 2 DIABETES MELLITUS
     Route: 065
     Dates: start: 20120920
  4. PLACEBO [Suspect]
     Indication: DRUG USE FOR UNKNOWN INDICATION
     Route: 065
  5. ASPIRIN [Concomitant]
     Dosage: dose: more than 100 mg
     Dates: start: 20101220
  6. ASPIRIN [Concomitant]
     Dosage: dose: more than 100 mg
     Dates: start: 20100915
  7. ASPIRIN [Concomitant]
     Dosage: dose: more than 100 mg
     Dates: start: 20110405
  8. ASPIRIN [Concomitant]
     Dosage: dose: more than 100 mg
     Dates: start: 20111227
  9. ASPIRIN [Concomitant]
     Dosage: dose: more than 100 mg
     Dates: start: 20110620
  10. ASPIRIN [Concomitant]
     Dosage: dose: more than 100 mg
     Dates: start: 20111004
  11. ASPIRIN [Concomitant]
     Dosage: dose: more than 100 mg
     Dates: start: 20120321
  12. TRIMETAZIDINE [Concomitant]
     Indication: ANGINA PECTORIS
     Dates: start: 20101220
  13. TRIMETAZIDINE [Concomitant]
     Indication: ANGINA PECTORIS
     Dates: start: 20100915
  14. TRIMETAZIDINE [Concomitant]
     Indication: ANGINA PECTORIS
     Dates: start: 20111227
  15. TRIMETAZIDINE [Concomitant]
     Indication: ANGINA PECTORIS
     Dates: start: 20111004
  16. TRIMETAZIDINE [Concomitant]
     Indication: ANGINA PECTORIS
     Dates: start: 20120321
  17. RANOLAZINE [Concomitant]
     Indication: ANGINA PECTORIS
     Dates: start: 20101220
  18. RANOLAZINE [Concomitant]
     Indication: ANGINA PECTORIS
     Dates: start: 20100915
  19. RANOLAZINE [Concomitant]
     Indication: ANGINA PECTORIS
     Dates: start: 20111227
  20. RANOLAZINE [Concomitant]
     Indication: ANGINA PECTORIS
     Dates: start: 20111004
  21. RANOLAZINE [Concomitant]
     Indication: ANGINA PECTORIS
     Dates: start: 20120627
  22. RANOLAZINE [Concomitant]
     Indication: ANGINA PECTORIS
     Dates: start: 20120321
  23. IVABRADINE HYDROCHLORIDE [Concomitant]
     Indication: ANGINA PECTORIS
     Dates: start: 20101220
  24. IVABRADINE HYDROCHLORIDE [Concomitant]
     Indication: ANGINA PECTORIS
     Dates: start: 20100915
  25. IVABRADINE HYDROCHLORIDE [Concomitant]
     Indication: ANGINA PECTORIS
     Dates: start: 20111227
  26. IVABRADINE HYDROCHLORIDE [Concomitant]
     Indication: ANGINA PECTORIS
     Dates: start: 20111004
  27. IVABRADINE HYDROCHLORIDE [Concomitant]
     Indication: ANGINA PECTORIS
     Dates: start: 20120321
  28. GLIBENCLAMIDE [Concomitant]
     Indication: DIABETES MELLITUS

REACTIONS (6)
  - Chest pain [Recovered/Resolved]
  - Gastric haemorrhage [Recovering/Resolving]
  - Musculoskeletal chest pain [None]
  - Gastric ulcer haemorrhage [None]
  - Hiatus hernia [None]
  - Low density lipoprotein increased [None]
